FAERS Safety Report 8664230 (Version 2)
Quarter: 2013Q4

REPORT INFORMATION
  Report Type: Spontaneous
  Country: FR (occurrence: FR)
  Receive Date: 20120713
  Receipt Date: 20131105
  Transmission Date: 20140711
  Serious: Yes (Hospitalization)
  Sender: FDA-Public Use
  Company Number: FR-009507513-1207FRA00013

PATIENT
  Age: 74 Year
  Sex: Male
  Weight: 72 kg

DRUGS (13)
  1. JANUVIA [Suspect]
     Dosage: 100 MG, QD
     Route: 048
     Dates: end: 20110430
  2. COLCHIMAX [Suspect]
     Indication: GOUT
     Dosage: UNK
     Dates: start: 20110428, end: 201105
  3. COLCHIMAX [Suspect]
     Dosage: UNK
     Dates: start: 201105
  4. LASILIX [Suspect]
     Indication: HYPERTENSION
     Dosage: 40 TO 120
     Route: 048
  5. LASILIX [Suspect]
     Indication: CARDIOMYOPATHY
  6. SPIRONOLACTONE [Suspect]
     Indication: HYPERTENSION
     Dosage: 25 MG, QD
     Route: 048
  7. SPIRONOLACTONE [Suspect]
     Indication: CARDIOMYOPATHY
  8. GLUCOPHAGE [Concomitant]
     Indication: GOUT
     Dosage: 1 G, BID
     Route: 048
     Dates: end: 20110430
  9. DIAMICRON [Concomitant]
     Indication: TYPE 2 DIABETES MELLITUS
     Dosage: 30 MG, QID
     Route: 048
     Dates: end: 20110430
  10. TAHOR [Concomitant]
     Indication: DYSLIPIDAEMIA
     Dosage: 20 MG, QD
     Route: 048
  11. ALLOPURINOL [Concomitant]
     Indication: GOUT
     Dosage: 100 MG, QD
     Route: 048
  12. LOPRIL [Concomitant]
     Indication: HYPERTENSION
     Dosage: 25 MG, BID
     Route: 048
  13. CARDENSIEL [Concomitant]
     Indication: HYPERTENSION
     Dosage: 1.25 MG, BID
     Route: 048

REACTIONS (3)
  - Vomiting [Recovered/Resolved]
  - Renal failure [Recovering/Resolving]
  - Diabetes mellitus inadequate control [Recovered/Resolved]
